FAERS Safety Report 8667277 (Version 4)
Quarter: 2012Q4

REPORT INFORMATION
  Report Type: Report from Study
  Country: MX (occurrence: MX)
  Receive Date: 20120717
  Receipt Date: 20121220
  Transmission Date: 20130627
  Serious: Yes (Hospitalization)
  Sender: FDA-Public Use
  Company Number: MX-BRISTOL-MYERS SQUIBB COMPANY-16749921

PATIENT
  Age: 39 Year
  Sex: Female
  Weight: 44 kg

DRUGS (9)
  1. ERBITUX [Suspect]
     Indication: HEAD AND NECK CANCER
     Dosage: R#1:400mg/m2 D1 of cyc1;Dose:12Jun12;Re on:04Jul12
R#2:250mg/m2,wekly(1/W)
     Route: 042
     Dates: start: 20120612
  2. CISPLATIN [Suspect]
     Indication: HEAD AND NECK CANCER
     Dosage: 100mg/m2 on D1;Last dose:12Jun12
1000mg/m2,D1-4, Intrave
     Route: 042
     Dates: start: 20120612
  3. 5-FLUOROURACIL [Suspect]
     Indication: HEAD AND NECK CANCER
     Dosage: 1000mg/m2 D1-4
Recent dose: 15Jun12
     Route: 042
     Dates: start: 20120612
  4. MORPHINE [Concomitant]
  5. PARACETAMOL [Concomitant]
  6. GABAPENTIN [Concomitant]
  7. METOCLOPRAMIDE [Concomitant]
  8. SODIUM PICOSULFATE [Concomitant]
  9. OMEPRAZOLE [Concomitant]

REACTIONS (1)
  - Mucosal inflammation [Recovered/Resolved]
